FAERS Safety Report 7148080-7 (Version None)
Quarter: 2010Q4

REPORT INFORMATION
  Report Type: 
  Country: None (occurrence: None)
  Receive Date: 20101209
  Receipt Date: 20100809
  Transmission Date: 20110411
  Serious: No
  Sender: FDA-Public Use
  Company Number: US-ABBOTT-10P-163-0663188-00

PATIENT
  Sex: Female

DRUGS (3)
  1. VICODIN ES [Suspect]
     Indication: PRODUCT USED FOR UNKNOWN INDICATION
     Dosage: THREE TIMES A DAY OR LESS AS NEEDED
     Route: 048
  2. XANAX [Concomitant]
     Indication: PRODUCT USED FOR UNKNOWN INDICATION
  3. UNKNOWN MEDICATION [Concomitant]
     Indication: ASTHMA
     Route: 055

REACTIONS (4)
  - AGITATION [None]
  - DYSPNOEA [None]
  - INSOMNIA [None]
  - PALPITATIONS [None]
